FAERS Safety Report 7050610-0 (Version None)
Quarter: 2010Q4

REPORT INFORMATION
  Report Type: 
  Country: None (occurrence: None)
  Receive Date: 20101018
  Receipt Date: 20101007
  Transmission Date: 20110411
  Serious: Yes (Hospitalization, Other)
  Sender: FDA-Public Use
  Company Number: US-ELI_LILLY_AND_COMPANY-US201004000722

PATIENT
  Sex: Male
  Weight: 145.13 kg

DRUGS (4)
  1. BYETTA [Suspect]
     Dosage: 10 UG, 2/D
     Route: 058
     Dates: start: 20080101, end: 20080401
  2. PRILOSEC [Concomitant]
     Indication: GASTROOESOPHAGEAL REFLUX DISEASE
     Dosage: 20 MG, DAILY (1/D)
  3. AZOR [Concomitant]
     Indication: HYPERTENSION
     Dosage: 5 MG, DAILY (1/D)
  4. TYLENOL-500 [Concomitant]
     Dosage: 1 D/F, Q 4 HRS AS NEEDED
     Route: 048

REACTIONS (2)
  - ABDOMINAL PAIN [None]
  - PANCREATITIS [None]
